FAERS Safety Report 9540782 (Version 1)
Quarter: 2013Q3

REPORT INFORMATION
  Report Type: Spontaneous
  Country: US (occurrence: US)
  Receive Date: 20130920
  Receipt Date: 20130920
  Transmission Date: 20140515
  Serious: Yes (Life-Threatening)
  Sender: FDA-Public Use
  Company Number: US-B.I. PHARMACEUTICALS,INC./RIDGEFIELD-2013-BI-29064BP

PATIENT
  Sex: Female

DRUGS (13)
  1. GILOTRIF [Suspect]
     Dosage: 30 MG
     Route: 048
  2. DILTIAZEM [Concomitant]
  3. SIMVASTATIN [Concomitant]
  4. TOPAMAX [Concomitant]
  5. LORTAB [Concomitant]
  6. ASPIRIN [Concomitant]
  7. VITAMIN D3 [Concomitant]
  8. ERYTHROMYCIN [Concomitant]
  9. LORAZEPAN [Concomitant]
  10. ZOFRAN [Concomitant]
  11. PHENERGAN [Concomitant]
  12. NEXIUM [Concomitant]
  13. POTASSIUM CHL ER [Concomitant]

REACTIONS (1)
  - Cerebrovascular accident [Unknown]
